FAERS Safety Report 5375527-9 (Version None)
Quarter: 2007Q2

REPORT INFORMATION
  Report Type: 
  Country: None (occurrence: None)
  Receive Date: 20070629
  Receipt Date: 20070619
  Transmission Date: 20071010
  Serious: Yes (Other)
  Sender: FDA-Public Use
  Company Number: US-PFIZER INC-2007050525

PATIENT
  Age: 64 Year
  Sex: Female

DRUGS (6)
  1. DETROL LA [Suspect]
     Indication: BLADDER DISORDER
  2. DETROL LA [Suspect]
     Indication: INCONTINENCE
  3. OXYBUTYNIN CHLORIDE [Suspect]
     Indication: BLADDER DISORDER
     Route: 062
     Dates: start: 20070515, end: 20070529
  4. OXYBUTYNIN CHLORIDE [Suspect]
     Indication: INCONTINENCE
  5. ZETIA [Suspect]
     Indication: BLOOD CHOLESTEROL
  6. ACTOS [Concomitant]

REACTIONS (7)
  - BLOOD GLUCOSE INCREASED [None]
  - DIZZINESS [None]
  - FATIGUE [None]
  - HEADACHE [None]
  - MICTURITION URGENCY [None]
  - NOCTURIA [None]
  - URINARY INCONTINENCE [None]
